FAERS Safety Report 4435818-2 (Version None)
Quarter: 2004Q3

REPORT INFORMATION
  Report Type: 
  Country: None (occurrence: None)
  Receive Date: 20040726
  Receipt Date: 20040415
  Transmission Date: 20050211
  Serious: No
  Sender: FDA-Public Use
  Company Number: USA040465141

PATIENT
  Age: 26 Year
  Sex: Female
  Weight: 91 kg

DRUGS (2)
  1. FORTEO [Suspect]
     Indication: OSTEOGENESIS IMPERFECTA
     Dosage: 20 UG DAY
     Dates: start: 20040331
  2. ADVIL [Concomitant]

REACTIONS (3)
  - INJECTION SITE HAEMORRHAGE [None]
  - INJECTION SITE PAIN [None]
  - INJECTION SITE STINGING [None]
